FAERS Safety Report 5017648-6 (Version None)
Quarter: 2006Q2

REPORT INFORMATION
  Report Type: 
  Country: None (occurrence: None)
  Receive Date: 20060605
  Receipt Date: 20060508
  Transmission Date: 20061013
  Serious: Yes (Other)
  Sender: FDA-Public Use
  Company Number: JP-ROCHE-447484

PATIENT
  Age: 26 Year
  Sex: Female
  Weight: 48 kg

DRUGS (7)
  1. TAMIFLU [Suspect]
     Route: 048
     Dates: start: 20060506, end: 20060507
  2. TAMIFLU [Suspect]
     Route: 048
     Dates: start: 20060508, end: 20060508
  3. CALONAL [Suspect]
     Indication: PYREXIA
     Dosage: FORM REPORTED AS FINE GRANULE.
     Route: 048
     Dates: start: 20060506, end: 20060506
  4. CALONAL [Suspect]
     Route: 048
     Dates: start: 20060507, end: 20060507
  5. MUCOSTA [Suspect]
     Indication: ABDOMINAL PAIN UPPER
     Dosage: DOSE TAKEN AS NEEDED.
     Route: 048
     Dates: start: 20060506, end: 20060506
  6. MUCOSTA [Suspect]
     Dosage: DOSE TAKEN AS NEEDED.
     Route: 048
     Dates: start: 20060507, end: 20060507
  7. BIOFERMIN [Concomitant]
     Route: 048
     Dates: start: 20060504

REACTIONS (1)
  - WHITE BLOOD CELL COUNT DECREASED [None]
